FAERS Safety Report 7499693-4 (Version None)
Quarter: 2011Q2

REPORT INFORMATION
  Report Type: 
  Country: None (occurrence: None)
  Receive Date: 20110524
  Receipt Date: 20110517
  Transmission Date: 20111010
  Serious: Yes (Other)
  Sender: FDA-Public Use
  Company Number: US-PFIZER INC-2011109077

PATIENT
  Sex: Male

DRUGS (6)
  1. METHYLPHENIDATE [Concomitant]
     Indication: ATTENTION DEFICIT/HYPERACTIVITY DISORDER
     Dosage: 5 MG, 2X/DAY
     Dates: start: 20040101, end: 20110501
  2. ATIVAN [Concomitant]
     Dosage: 0.5 MG, 3X/DAY
     Dates: start: 20110501
  3. GEODON [Suspect]
     Indication: BIPOLAR DISORDER
     Dosage: 80 MG, AT BED TIME
     Route: 048
     Dates: start: 20100427, end: 20110412
  4. RISPERDAL [Suspect]
  5. GEODON [Suspect]
     Indication: DISINHIBITION
  6. ATIVAN [Concomitant]
     Indication: ANXIETY
     Dosage: 0.5 MG, 1X/DAY AS NEEDED
     Dates: start: 20040101, end: 20110501

REACTIONS (3)
  - BLOOD GLUCOSE FLUCTUATION [None]
  - DYSKINESIA [None]
  - GRUNTING [None]
